FAERS Safety Report 7003720-8 (Version None)
Quarter: 2010Q3

REPORT INFORMATION
  Report Type: 
  Country: None (occurrence: None)
  Receive Date: 20100920
  Receipt Date: 20090910
  Transmission Date: 20110219
  Serious: No
  Sender: FDA-Public Use
  Company Number: US-WYE-H10942709

PATIENT
  Sex: Female
  Weight: 61.29 kg

DRUGS (5)
  1. PROTONIX [Suspect]
     Indication: GASTROOESOPHAGEAL REFLUX DISEASE
     Route: 048
     Dates: start: 20080101
  2. BENAZEPRIL HYDROCHLORIDE [Concomitant]
  3. METOCLOPRAMIDE [Concomitant]
  4. FELODIPINE [Concomitant]
  5. METOPROLOL [Concomitant]

REACTIONS (1)
  - ABDOMINAL DISTENSION [None]
